FAERS Safety Report 16582647 (Version 6)
Quarter: 2019Q4

REPORT INFORMATION
  Report Type: Report from Study
  Country: DE (occurrence: DE)
  Receive Date: 20190717
  Receipt Date: 20191101
  Transmission Date: 20200122
  Serious: Yes (Life-Threatening, Hospitalization)
  Sender: FDA-Public Use
  Company Number: PHHO2019DE007338

PATIENT
  Age: 60 Year
  Sex: Male
  Weight: 108 kg

DRUGS (13)
  1. KALIUM ^VERLA^ [Concomitant]
     Indication: BLOOD POTASSIUM DECREASED
     Dosage: UNK
     Route: 065
     Dates: start: 20190606, end: 20190709
  2. METOPROLOL. [Concomitant]
     Active Substance: METOPROLOL
     Indication: HYPERTENSION
     Dosage: UNK
     Route: 065
     Dates: start: 20140101
  3. L-THYROXINE [Concomitant]
     Active Substance: LEVOTHYROXINE
     Indication: HYPOTHYROIDISM
     Dosage: 150
     Route: 065
     Dates: start: 20160101
  4. DEKRISTOL [Concomitant]
     Active Substance: CHOLECALCIFEROL
     Indication: VITAMIN SUPPLEMENTATION
     Dosage: UNK
     Route: 065
     Dates: start: 20160101
  5. MAGNESIUM VERLA [Concomitant]
     Active Substance: MAGNESIUM
     Indication: PROPHYLAXIS
     Route: 065
     Dates: start: 20190101, end: 20190709
  6. SACUBITRIL,VALSARTAN [Suspect]
     Active Substance: SACUBITRIL\VALSARTAN
     Indication: ERECTILE DYSFUNCTION
  7. ASA [Concomitant]
     Active Substance: ASPIRIN
     Indication: VENTRICULAR TACHYCARDIA
     Dosage: 75
     Route: 065
     Dates: start: 20160601
  8. ASA [Concomitant]
     Active Substance: ASPIRIN
     Indication: CARDIAC ABLATION
  9. TORASEMID [Concomitant]
     Active Substance: TORSEMIDE
     Indication: PROPHYLAXIS
     Dosage: UNK
     Route: 065
     Dates: start: 20160101
  10. VITAMIN B COMPLEX NOS [Concomitant]
     Active Substance: CYANOCOBALAMIN\PYRIDOXINE HYDROCHLORIDE\RIBOFLAVIN\SODIUM PANTOTHENATE\THIAMINE HYDROCHLORIDE\VITAMIN B COMPLEX
     Indication: VITAMIN SUPPLEMENTATION
     Dosage: UNK
     Route: 065
     Dates: start: 20190101, end: 20190709
  11. TROMCARDIN COMPLEX [Concomitant]
     Indication: CARDIAC RESYNCHRONISATION THERAPY
     Dosage: UNK
     Route: 065
     Dates: start: 20190520, end: 20190709
  12. SACUBITRIL,VALSARTAN [Suspect]
     Active Substance: SACUBITRIL\VALSARTAN
     Indication: CARDIAC FAILURE
     Dosage: UNK
     Route: 048
     Dates: start: 20190523, end: 20190708
  13. METOPROLOL. [Concomitant]
     Active Substance: METOPROLOL
     Dosage: UNK
     Route: 065
     Dates: start: 20190709

REACTIONS (2)
  - Ventricular tachycardia [Recovered/Resolved]
  - Hypertensive crisis [Recovered/Resolved]

NARRATIVE: CASE EVENT DATE: 20190708
